FAERS Safety Report 9989534 (Version 1)
Quarter: 2014Q1

REPORT INFORMATION
  Report Type: Report from Study
  Country: US (occurrence: US)
  Receive Date: 20140310
  Receipt Date: 20140310
  Transmission Date: 20141002
  Serious: No
  Sender: FDA-Public Use
  Company Number: US-ABBVIE-13P-163-1129606-00

PATIENT
  Age: 25 Year
  Sex: Female

DRUGS (8)
  1. HUMIRA [Suspect]
     Indication: COLITIS ULCERATIVE
     Dates: start: 20130506, end: 20130506
  2. HUMIRA [Suspect]
     Dates: start: 20130520, end: 20130520
  3. HUMIRA [Suspect]
     Dates: start: 20130603
  4. APRISO [Concomitant]
     Indication: COLITIS ULCERATIVE
  5. MERCAPTOPURINE [Concomitant]
     Indication: COLITIS ULCERATIVE
     Dosage: 50MG ON MON,WED, AND FRI; 75MG ON TUE, THUR,SAT AND SUN
  6. ONE DAY WOMEN^S VITAMIN [Concomitant]
     Indication: PRODUCT USED FOR UNKNOWN INDICATION
  7. ORTHOCYCLINE [Concomitant]
     Indication: CONTRACEPTION
     Dosage: DAILY
  8. AMBIEN [Concomitant]
     Indication: INSOMNIA
     Dosage: AT NIGHT

REACTIONS (2)
  - Injection site pain [Recovered/Resolved]
  - Injection site urticaria [Recovered/Resolved]
